FAERS Safety Report 9859495 (Version 1)
Quarter: 2014Q1

REPORT INFORMATION
  Report Type: Spontaneous
  Country: CH (occurrence: CH)
  Receive Date: 20140131
  Receipt Date: 20140131
  Transmission Date: 20141002
  Serious: Yes (Other)
  Sender: FDA-Public Use
  Company Number: CH-SA-2014SA010715

PATIENT
  Age: 58 Year
  Sex: Male

DRUGS (12)
  1. METHOTREXATE [Suspect]
     Indication: OVERLAP SYNDROME
     Route: 065
  2. MYCOPHENOLATE MOFETIL [Suspect]
     Indication: OVERLAP SYNDROME
     Route: 065
  3. HYDROXYCHLOROQUINE [Suspect]
     Indication: OVERLAP SYNDROME
     Route: 065
  4. SILDENAFIL CITRATE [Suspect]
     Indication: OVERLAP SYNDROME
     Route: 065
  5. SILDENAFIL CITRATE [Suspect]
     Indication: OVERLAP SYNDROME
     Route: 065
  6. PENTOXIFYLLINE [Suspect]
     Indication: OVERLAP SYNDROME
     Route: 048
  7. PREDNISONE [Concomitant]
     Indication: OVERLAP SYNDROME
  8. PREDNISONE [Concomitant]
     Indication: OVERLAP SYNDROME
  9. AZATHIOPRINE [Concomitant]
     Indication: OVERLAP SYNDROME
  10. IMMUNOGLOBULIN [Concomitant]
     Indication: OVERLAP SYNDROME
     Dosage: DOSE: 2 G/KG BODY WEIGHT
     Route: 042
  11. ILOPROST [Concomitant]
     Indication: OVERLAP SYNDROME
     Dosage: FORM: INFUSION
  12. RITUXIMAB [Concomitant]
     Indication: OVERLAP SYNDROME
     Dosage: APPLIED TWICE

REACTIONS (3)
  - Renal failure [Unknown]
  - Oedema peripheral [Unknown]
  - Off label use [Unknown]
